FAERS Safety Report 16179412 (Version 4)
Quarter: 2019Q3

REPORT INFORMATION
  Report Type: Other
  Country: US (occurrence: US)
  Receive Date: 20190410
  Receipt Date: 20190820
  Transmission Date: 20191004
  Serious: Yes (Hospitalization, Other)
  Sender: FDA-Public Use
  Company Number: US-BIOVITRUM-2019US0695

PATIENT
  Sex: Female

DRUGS (2)
  1. KINERET [Suspect]
     Active Substance: ANAKINRA
     Route: 058
     Dates: start: 20190802
  2. KINERET [Suspect]
     Active Substance: ANAKINRA
     Indication: CRYOPYRIN ASSOCIATED PERIODIC SYNDROME
     Dosage: 100MG EVERY MORNING AND AT NOON; 200MG AT BEDTIME
     Route: 058
     Dates: start: 20190703

REACTIONS (8)
  - Urticaria [Unknown]
  - Nausea [Recovering/Resolving]
  - Cholecystitis [Unknown]
  - Inflammation [Unknown]
  - Injection site bruising [Unknown]
  - Vomiting [Recovering/Resolving]
  - Cholecystitis [Recovering/Resolving]
  - Drug ineffective [Unknown]
